FAERS Safety Report 10456796 (Version 1)
Quarter: 2014Q3

REPORT INFORMATION
  Report Type: Spontaneous
  Country: DE (occurrence: DE)
  Receive Date: 20140916
  Receipt Date: 20140916
  Transmission Date: 20150326
  Serious: No
  Sender: FDA-Public Use
  Company Number: PHHY2014DE117604

PATIENT
  Sex: Female

DRUGS (1)
  1. VOLTAREN RESINAT [Suspect]
     Active Substance: DICLOFENAC
     Dosage: 75 MG, BID
     Route: 048
     Dates: start: 201408

REACTIONS (1)
  - Cataract [Unknown]

NARRATIVE: CASE EVENT DATE: 2014
